FAERS Safety Report 5259934-0 (Version None)
Quarter: 2007Q1

REPORT INFORMATION
  Report Type: 
  Country: None (occurrence: None)
  Receive Date: 20070309
  Receipt Date: 20070307
  Transmission Date: 20070707
  Serious: Yes (Other)
  Sender: FDA-Public Use
  Company Number: PAR-8193-AE

PATIENT
  Age: 6 Year
  Sex: Male

DRUGS (6)
  1. AMOXICILLIN + CLAVULANATE POTASSIUM [Suspect]
     Indication: CHRONIC SINUSITIS
     Route: 048
     Dates: start: 20070201, end: 20070303
  2. PULMICORT [Concomitant]
  3. XOPENEX [Concomitant]
  4. SINGULAIR [Concomitant]
  5. ZYRTEC [Concomitant]
  6. FLONASE [Concomitant]

REACTIONS (3)
  - ASTHMA [None]
  - RASH [None]
  - URTICARIA [None]
